FAERS Safety Report 8580590-8 (Version None)
Quarter: 2012Q3

REPORT INFORMATION
  Report Type: 
  Country: None (occurrence: None)
  Receive Date: 20120809
  Receipt Date: 20120731
  Transmission Date: 20120928
  Serious: Yes (Hospitalization, Other)
  Sender: FDA-Public Use
  Company Number: TR-AMGEN-TURSP2012025562

PATIENT
  Age: 48 Year
  Sex: Female

DRUGS (4)
  1. METHOTREXATE SODIUM [Concomitant]
     Indication: RHEUMATOID ARTHRITIS
     Dosage: TABLET 1X4/WEEKLY
     Dates: start: 20060101
  2. ENBREL [Suspect]
     Dosage: 50 MG, WEEKLY
     Route: 058
     Dates: start: 20120430
  3. ENBREL [Suspect]
     Indication: RHEUMATOID ARTHRITIS
     Dosage: 50 MG, WEEKLY
     Route: 058
     Dates: start: 20111110, end: 20120315
  4. ENDOL                              /00003801/ [Concomitant]
     Indication: RHEUMATOID ARTHRITIS
     Dosage: TABLET 1X/DAY
     Route: 048
     Dates: start: 20060101

REACTIONS (2)
  - URINARY TRACT INFECTION [None]
  - OVARIAN CYST [None]
